FAERS Safety Report 9731407 (Version 3)
Quarter: 2014Q1

REPORT INFORMATION
  Report Type: Report from Study
  Country: FR (occurrence: FR)
  Receive Date: 20131203
  Receipt Date: 20140203
  Transmission Date: 20141002
  Serious: Yes (Hospitalization, Other)
  Sender: FDA-Public Use
  Company Number: PHHY2013FR136766

PATIENT
  Age: 54 Year
  Sex: Male

DRUGS (15)
  1. MYCOPHENOLIC ACID [Suspect]
     Indication: IMMUNOSUPPRESSION
     Dosage: 1440 MG
     Route: 048
     Dates: start: 20130420
  2. MYCOPHENOLIC ACID [Suspect]
     Indication: RENAL TRANSPLANT
     Dosage: 720 MG,DURING HOSPITALIZATION
     Route: 048
  3. PROGRAF [Suspect]
     Indication: IMMUNOSUPPRESSION
     Dosage: 3.5 MG, QD
  4. PROGRAF [Suspect]
     Dosage: 10 MG
     Dates: start: 20130424, end: 20130425
  5. PROGRAF [Suspect]
     Dosage: 12 MG
     Dates: start: 20130426, end: 20130427
  6. PROGRAF [Suspect]
     Dosage: 14 MG
     Dates: start: 20130429, end: 20130504
  7. PROGRAF [Suspect]
     Dosage: 7 MG
     Dates: start: 20130505, end: 20130505
  8. PROGRAF [Suspect]
     Dosage: 12 MG
     Dates: start: 20130506, end: 20130509
  9. PROGRAF [Suspect]
     Dosage: 10 MG
     Dates: start: 20130510, end: 20130510
  10. PROGRAF [Suspect]
     Dosage: DOSE REDUCED DURING HOSPITALIZATION
  11. CORTICOSTEROIDS [Concomitant]
     Indication: IMMUNOSUPPRESSION
     Dosage: 500 MG
     Route: 048
     Dates: start: 20130420
  12. CORTICOSTEROIDS [Concomitant]
     Dosage: 125 MG
     Route: 048
     Dates: start: 20130421
  13. CORTICOSTEROIDS [Concomitant]
     Dosage: 20 MG
     Route: 048
     Dates: start: 20130422
  14. SOLUPRED [Concomitant]
     Indication: IMMUNOSUPPRESSION
     Dosage: 20 MG
     Dates: start: 20130422
  15. SOLUPRED [Concomitant]
     Dosage: 10 MG
     Dates: start: 20130524, end: 20130704

REACTIONS (6)
  - Diabetes mellitus inadequate control [Not Recovered/Not Resolved]
  - Renal failure acute [Recovered/Resolved]
  - Cytomegalovirus infection [Recovered/Resolved]
  - Nephropathy toxic [Recovered/Resolved]
  - Hypokalaemia [Recovered/Resolved]
  - Leukopenia [Recovered/Resolved]
